FAERS Safety Report 11328808 (Version 5)
Quarter: 2015Q4

REPORT INFORMATION
  Report Type: Report from Study
  Country: NO (occurrence: NO)
  Receive Date: 20150731
  Receipt Date: 20151208
  Transmission Date: 20160304
  Serious: Yes (Death, Hospitalization, Other)
  Sender: FDA-Public Use
  Company Number: US-ASTRAZENECA-2015SE74223

PATIENT
  Age: 73 Year
  Sex: Female
  Weight: 77 kg

DRUGS (5)
  1. SABA VENTOLINE [Concomitant]
     Dates: end: 20141018
  2. OXYGEN. [Concomitant]
     Active Substance: OXYGEN
     Dosage: LONG TERM
  3. SAMA ATROVENT [Concomitant]
     Dates: end: 20141018
  4. DAXAS [Suspect]
     Active Substance: ROFLUMILAST
     Indication: CHRONIC OBSTRUCTIVE PULMONARY DISEASE
     Route: 048
     Dates: start: 20140303, end: 20140423
  5. LEUKOTRIENE ANTAGONISTS SERETIDE [Concomitant]
     Dosage: 10 MG (100/1000), DAILY
     Dates: end: 20141018

REACTIONS (4)
  - Nausea [Recovering/Resolving]
  - Dyspnoea [Unknown]
  - Respiratory failure [Unknown]
  - Neoplasm malignant [Fatal]

NARRATIVE: CASE EVENT DATE: 2014
